FAERS Safety Report 15136695 (Version 2)
Quarter: 2018Q3

REPORT INFORMATION
  Report Type: Spontaneous
  Country: FR (occurrence: FR)
  Receive Date: 20180712
  Receipt Date: 20180806
  Transmission Date: 20181010
  Serious: Yes (Life-Threatening, Hospitalization, Disabling, Other)
  Sender: FDA-Public Use
  Company Number: FR-MYLANLABS-2018M1049498

PATIENT
  Age: 48 Year
  Sex: Female
  Weight: 45 kg

DRUGS (14)
  1. DEXAMETHASONE. [Suspect]
     Active Substance: DEXAMETHASONE
     Indication: ANTIEMETIC SUPPORTIVE CARE
     Dosage: 8 MG, UNK
     Route: 042
     Dates: start: 20130826, end: 20130826
  2. SUFENTA [Interacting]
     Active Substance: SUFENTANIL CITRATE
     Indication: PRODUCT USED FOR UNKNOWN INDICATION
     Dosage: UNK
     Route: 042
     Dates: start: 20130826, end: 20130826
  3. CIFLOX                             /00697201/ [Concomitant]
     Active Substance: CIPROFLOXACIN
     Indication: PRODUCT USED FOR UNKNOWN INDICATION
     Dosage: UNK
  4. EXACYL [Interacting]
     Active Substance: TRANEXAMIC ACID
     Indication: GENITAL HAEMORRHAGE
     Dosage: 0.5 MG/5ML
     Route: 042
     Dates: start: 20130826, end: 20130826
  5. SODIUM CHLORIDE. [Concomitant]
     Active Substance: SODIUM CHLORIDE
     Indication: PRODUCT USED FOR UNKNOWN INDICATION
     Dosage: UNK
  6. EPHEDRINE. [Concomitant]
     Active Substance: EPHEDRINE
     Indication: HYPOTENSION
     Dosage: UNK
  7. PERFALGAN [Suspect]
     Active Substance: ACETAMINOPHEN
     Indication: PRODUCT USED FOR UNKNOWN INDICATION
     Dosage: 1 G, UNK
     Route: 042
     Dates: start: 20130826, end: 20130826
  8. ROVAMYCINE                         /00074401/ [Concomitant]
     Active Substance: SPIRAMYCIN
     Indication: PRODUCT USED FOR UNKNOWN INDICATION
     Dosage: UNK
  9. EXACYL [Interacting]
     Active Substance: TRANEXAMIC ACID
     Dosage: 4 G ADMINISTERED AS 1G (CHARGE DOSE) AND 3G WITHIN 3 HOURS
     Route: 042
     Dates: start: 20130826, end: 20130826
  10. PROFENID [Interacting]
     Active Substance: KETOPROFEN
     Indication: PRODUCT USED FOR UNKNOWN INDICATION
     Dosage: 100 MG
     Route: 042
     Dates: start: 20130826, end: 20130826
  11. VOLUVEN [Concomitant]
     Active Substance: HYDROXYETHYL STARCH 130/0.4
     Indication: PRODUCT USED FOR UNKNOWN INDICATION
     Dosage: UNK
  12. PIPERACILLIN [Concomitant]
     Active Substance: PIPERACILLIN
     Indication: PRODUCT USED FOR UNKNOWN INDICATION
  13. TAZOBACTAM [Concomitant]
     Active Substance: TAZOBACTAM
     Indication: PRODUCT USED FOR UNKNOWN INDICATION
     Dosage: UNK
  14. PROPOFOL. [Concomitant]
     Active Substance: PROPOFOL
     Indication: PRODUCT USED FOR UNKNOWN INDICATION
     Dosage: UNK

REACTIONS (9)
  - Renal cortical necrosis [Not Recovered/Not Resolved]
  - Hepatocellular injury [Unknown]
  - Coagulopathy [Unknown]
  - Overdose [Unknown]
  - Potentiating drug interaction [Unknown]
  - Hepatic enzyme increased [Unknown]
  - Haemolysis [Unknown]
  - Acute kidney injury [Not Recovered/Not Resolved]
  - Acute pulmonary oedema [Recovered/Resolved]

NARRATIVE: CASE EVENT DATE: 20130826
